FAERS Safety Report 7539516-8 (Version None)
Quarter: 2011Q2

REPORT INFORMATION
  Report Type: 
  Country: None (occurrence: None)
  Receive Date: 20110610
  Receipt Date: 20110603
  Transmission Date: 20111010
  Serious: Yes (Other)
  Sender: FDA-Public Use
  Company Number: BR-PFIZER INC-2011122140

PATIENT
  Age: 30 Year
  Sex: Female
  Weight: 46.1 kg

DRUGS (6)
  1. VFEND [Suspect]
     Dosage: 400 MG (FIRST TWO DOSES), EVERY 12 HOURS
     Route: 042
     Dates: start: 20110411
  2. ACYCLOVIR [Concomitant]
     Dosage: 400 MG, EVERY 12 HOURS
     Route: 048
  3. CICLOSPORIN [Concomitant]
     Dosage: 70 MG, EVERY 12 HOURS
     Route: 042
  4. URSODEOXYCHOLIC ACID [Concomitant]
     Dosage: 300 MG, EVERY 12 HOURS
     Route: 048
  5. OMEPRAZOLE [Concomitant]
     Dosage: 20 MG, EVERY 24 HOURS
     Route: 048
  6. FOLINIC ACID [Concomitant]
     Dosage: 15 MG, EVERY 24 HOURS
     Route: 048

REACTIONS (2)
  - VISION BLURRED [None]
  - SCINTILLATING SCOTOMA [None]
